FAERS Safety Report 5574386-9 (Version None)
Quarter: 2007Q4

REPORT INFORMATION
  Report Type: 
  Country: None (occurrence: None)
  Receive Date: 20071226
  Receipt Date: 20071226
  Transmission Date: 20080405
  Serious: No
  Sender: FDA-Public Use
  Company Number: None

PATIENT
  Age: 52 Year
  Sex: Female
  Weight: 97.5234 kg

DRUGS (1)
  1. ZICAM NO DRIP LIQUID NASAL GEL NONE MATRIXX INIATIVES, INC. [Suspect]
     Indication: NASOPHARYNGITIS
     Dosage: SPRAY IN NOSTRIL DON''T KNOW INHAL ONE TIME ONLY NOV. 2006
     Route: 055
     Dates: start: 20061101

REACTIONS (4)
  - AGEUSIA [None]
  - ANOSMIA [None]
  - NAUSEA [None]
  - PAROSMIA [None]
